FAERS Safety Report 9800942 (Version 2)
Quarter: 2014Q1

REPORT INFORMATION
  Report Type: Spontaneous
  Country: US (occurrence: US)
  Receive Date: 20140107
  Receipt Date: 20140122
  Transmission Date: 20141002
  Serious: Yes (Hospitalization)
  Sender: FDA-Public Use
  Company Number: US-SA-2014SA000511

PATIENT
  Age: 80 Year
  Sex: Female
  Weight: 54.5 kg

DRUGS (2)
  1. HECTOROL [Suspect]
     Indication: HYPERPARATHYROIDISM SECONDARY
     Dosage: FREQUENCY THREE TIMES A WEEK
     Route: 042
     Dates: start: 20131221, end: 20131221
  2. EPOGEN [Concomitant]
     Indication: NEPHROGENIC ANAEMIA
     Dosage: DOSE:2000 UNIT(S)
     Dates: start: 20131130

REACTIONS (4)
  - Hypersensitivity [Recovered/Resolved]
  - Erythema [Recovered/Resolved]
  - Flushing [Recovered/Resolved]
  - Back pain [Recovered/Resolved]
